FAERS Safety Report 19972893 (Version 2)
Quarter: 2021Q4

REPORT INFORMATION
  Report Type: Spontaneous
  Country: US (occurrence: US)
  Receive Date: 20211020
  Receipt Date: 20211028
  Transmission Date: 20220303
  Serious: No
  Sender: FDA-Public Use
  Company Number: US-LEO PHARMA-339223

PATIENT
  Age: 62 Year
  Sex: Female

DRUGS (2)
  1. FINACEA [Suspect]
     Active Substance: AZELAIC ACID
     Indication: Rosacea
     Dosage: TWICE DAILY ON THE FACE
     Dates: start: 20211004, end: 20211011
  2. FINACEA [Suspect]
     Active Substance: AZELAIC ACID
     Indication: Rosacea
     Dosage: TWICE DAILY ON THE FACE
     Dates: start: 20211004, end: 20211011

REACTIONS (4)
  - Skin wrinkling [Recovering/Resolving]
  - Dry skin [Recovering/Resolving]
  - Skin burning sensation [Recovered/Resolved]
  - Erythema [Recovering/Resolving]

NARRATIVE: CASE EVENT DATE: 20211004
